FAERS Safety Report 16479073 (Version 2)
Quarter: 2020Q3

REPORT INFORMATION
  Report Type: Spontaneous
  Country: US (occurrence: US)
  Receive Date: 20190626
  Receipt Date: 20200710
  Transmission Date: 20201102
  Serious: No
  Sender: FDA-Public Use
  Company Number: US-SAOL THERAPEUTICS-2018SAO00940

PATIENT
  Sex: Male

DRUGS (2)
  1. LIORESAL [Suspect]
     Active Substance: BACLOFEN
     Indication: MULTIPLE SCLEROSIS
     Dosage: 1636.5 ?G, \DAY
     Route: 037
     Dates: start: 20190618
  2. LIORESAL [Suspect]
     Active Substance: BACLOFEN
     Indication: MUSCLE SPASTICITY
     Dosage: 1557.9 ?G, \DAY
     Route: 037
     Dates: end: 20190618

REACTIONS (3)
  - Device kink [Unknown]
  - Device infusion issue [Unknown]
  - Therapy non-responder [Unknown]
